FAERS Safety Report 14363682 (Version 2)
Quarter: 2018Q1

REPORT INFORMATION
  Report Type: Spontaneous
  Country: NL (occurrence: NL)
  Receive Date: 20180108
  Receipt Date: 20180124
  Transmission Date: 20180509
  Serious: Yes (Hospitalization)
  Sender: FDA-Public Use
  Company Number: NL-MERZ NORTH AMERICA, INC.-18MRZ-00007

PATIENT
  Age: 13 Year
  Sex: Male
  Weight: 32 kg

DRUGS (9)
  1. BACLOFEN. [Concomitant]
     Active Substance: BACLOFEN
     Indication: PRODUCT USED FOR UNKNOWN INDICATION
     Dosage: 3 MG/ML THREE TIMES PER DAY
     Route: 048
     Dates: start: 20160909
  2. VALPRO?NEZUUR DRANK [Concomitant]
     Indication: PRODUCT USED FOR UNKNOWN INDICATION
     Dosage: 40 MG/ML, 6.5ML EVERY 8 HOURS
     Route: 048
     Dates: start: 20140228
  3. XEOMIN [Suspect]
     Active Substance: INCOBOTULINUMTOXINA
     Indication: MUSCLE SPASTICITY
     Dosage: 400 IU
     Route: 065
     Dates: start: 20170628, end: 20170628
  4. MACROGOLPOEDER (MACROGOL POWDER) [Concomitant]
     Indication: PRODUCT USED FOR UNKNOWN INDICATION
     Dosage: 1 SACHET EVERY SECOND DAY
     Route: 048
  5. SALBUTAMOL NEBULES [Concomitant]
     Indication: PRODUCT USED FOR UNKNOWN INDICATION
     Dosage: 2 TIMES DAILY AS REQUIRED
     Dates: start: 20160909
  6. FENOBARBITAL DRANK [Concomitant]
     Indication: PRODUCT USED FOR UNKNOWN INDICATION
     Route: 048
     Dates: start: 20170925
  7. OMEPRAZOLE. [Concomitant]
     Active Substance: OMEPRAZOLE
     Indication: PRODUCT USED FOR UNKNOWN INDICATION
     Dosage: 20MG TWO TIMES DAILY
     Route: 048
     Dates: start: 20150925
  8. LEVETERACETAM DRANK [Concomitant]
     Indication: PRODUCT USED FOR UNKNOWN INDICATION
     Dosage: 100 MG/ML EVERY 8 HOURS
     Route: 048
     Dates: start: 20150925
  9. CLONAZEPAM. [Concomitant]
     Active Substance: CLONAZEPAM
     Indication: SEIZURE
     Dosage: 7.5MG THREE TIMES DAILY
     Route: 048
     Dates: start: 20160909

REACTIONS (1)
  - Glossopharyngeal nerve disorder [Not Recovered/Not Resolved]

NARRATIVE: CASE EVENT DATE: 20170704
